FAERS Safety Report 4847611-7 (Version None)
Quarter: 2005Q4

REPORT INFORMATION
  Report Type: 
  Country: None (occurrence: None)
  Receive Date: 20051207
  Receipt Date: 20051128
  Transmission Date: 20060501
  Serious: Yes (Other)
  Sender: FDA-Public Use
  Company Number: PHNU2005PL03969

PATIENT

DRUGS (1)
  1. DIOVAN HCT [Suspect]
     Dosage: UNK, UNK
     Route: 048

REACTIONS (3)
  - ATRIOVENTRICULAR BLOCK [None]
  - HYPERKALAEMIA [None]
  - RENAL FAILURE [None]
